FAERS Safety Report 7403949-0 (Version None)
Quarter: 2011Q2

REPORT INFORMATION
  Report Type: 
  Country: None (occurrence: None)
  Receive Date: 20110408
  Receipt Date: 20110407
  Transmission Date: 20111010
  Serious: Yes (Other)
  Sender: FDA-Public Use
  Company Number: US-SHIRE-SPV1-2011-00098

PATIENT
  Sex: Female
  Weight: 30.4 kg

DRUGS (2)
  1. CONCERTA [Concomitant]
     Indication: PRODUCT USED FOR UNKNOWN INDICATION
     Dosage: UNK, UNKNOWN
     Route: 065
  2. INTUNIV [Suspect]
     Indication: ATTENTION DEFICIT/HYPERACTIVITY DISORDER
     Dosage: 3 MG, 1X/DAY:QD (AT HOURS OF SLEEP)
     Route: 048
     Dates: start: 20101220

REACTIONS (1)
  - BENIGN ROLANDIC EPILEPSY [None]
